FAERS Safety Report 23988961 (Version 1)
Quarter: 2024Q2

REPORT INFORMATION
  Report Type: Spontaneous
  Country: CN (occurrence: CN)
  Receive Date: 20240619
  Receipt Date: 20240619
  Transmission Date: 20240715
  Serious: Yes (Other)
  Sender: FDA-Public Use
  Company Number: CN-MLMSERVICE-20240531-PI085695-00101-1

PATIENT
  Age: 55 Year
  Sex: Female

DRUGS (4)
  1. CISPLATIN [Suspect]
     Active Substance: CISPLATIN
     Indication: Nonkeratinising carcinoma of nasopharynx
     Dosage: 1000MG/M2, D1,8; 21 DAYS PER CYCLE (TWO CYCLES)
     Dates: start: 202207, end: 202208
  2. GEMCITABINE [Suspect]
     Active Substance: GEMCITABINE
     Indication: Nasopharyngeal cancer stage IV
     Dosage: 75MG/M2, D1; 21 DAYS PER CYCLE (TWO CYCLES)
     Dates: start: 202207, end: 202208
  3. CISPLATIN [Suspect]
     Active Substance: CISPLATIN
     Indication: Nasopharyngeal cancer stage IV
     Dosage: 1000MG/M2, D1,8; 21 DAYS PER CYCLE (TWO CYCLES)
     Dates: start: 202207, end: 202208
  4. GEMCITABINE [Suspect]
     Active Substance: GEMCITABINE
     Indication: Nonkeratinising carcinoma of nasopharynx
     Dosage: 75MG/M2, D1; 21 DAYS PER CYCLE (TWO CYCLES )
     Dates: start: 202207, end: 202208

REACTIONS (4)
  - Renal impairment [Unknown]
  - Thrombocytopenia [Unknown]
  - Anaemia [Unknown]
  - Leukopenia [Unknown]

NARRATIVE: CASE EVENT DATE: 20220101
